FAERS Safety Report 7163717-4 (Version None)
Quarter: 2010Q4

REPORT INFORMATION
  Report Type: 
  Country: None (occurrence: None)
  Receive Date: 20101215
  Receipt Date: 20100602
  Transmission Date: 20110411
  Serious: Yes (Hospitalization, Other)
  Sender: FDA-Public Use
  Company Number: US-PFIZER INC-2010060043

PATIENT
  Sex: Male
  Weight: 100 kg

DRUGS (6)
  1. LYRICA [Suspect]
     Indication: POST HERPETIC NEURALGIA
     Dosage: 75 MG, 2X/DAY
     Route: 048
     Dates: start: 20100303, end: 20100301
  2. LYRICA [Suspect]
     Dosage: 150 MG, 2X/DAY
     Dates: start: 20100301, end: 20100510
  3. AMLODIPINE [Concomitant]
     Dosage: 10 MG, UNK
  4. LISINOPRIL AND HYDROCHLOROTHIAZIDE [Concomitant]
     Dosage: 20/25, UNK
  5. SIMVASTATIN [Concomitant]
     Dosage: UNK
  6. CITRIMAX [Concomitant]
     Dosage: UNK

REACTIONS (6)
  - DEHYDRATION [None]
  - DIZZINESS [None]
  - RENAL FAILURE [None]
  - RHABDOMYOLYSIS [None]
  - SEPSIS [None]
  - UROSEPSIS [None]
